FAERS Safety Report 23778468 (Version 1)
Quarter: 2024Q2

REPORT INFORMATION
  Report Type: Spontaneous
  Country: KR (occurrence: KR)
  Receive Date: 20240424
  Receipt Date: 20240424
  Transmission Date: 20240716
  Serious: Yes (Hospitalization)
  Sender: FDA-Public Use
  Company Number: KR-TAKEDA-2024TUS036445

PATIENT
  Age: 33 Year
  Sex: Male

DRUGS (4)
  1. PANTOPRAZOLE SODIUM [Suspect]
     Active Substance: PANTOPRAZOLE SODIUM
     Indication: Gastrointestinal disorder
     Dosage: 40 MILLIGRAM, Q12H
     Route: 042
     Dates: start: 20221216, end: 20221223
  2. CEFTEZOLE SODIUM [Suspect]
     Active Substance: CEFTEZOLE SODIUM
     Indication: Antibiotic therapy
     Dosage: 1 GRAM, Q12H
     Route: 042
     Dates: start: 20221209, end: 20221216
  3. CELECOXIB [Suspect]
     Active Substance: CELECOXIB
     Indication: Pain
     Dosage: 100 MILLIGRAM, Q12H
     Route: 048
     Dates: start: 20221228, end: 20230103
  4. QUETIAPINE FUMARATE [Suspect]
     Active Substance: QUETIAPINE FUMARATE
     Indication: Neurosis
     Dosage: 100 MILLIGRAM, QD
     Route: 048
     Dates: start: 20221228, end: 20230103

REACTIONS (4)
  - Pyrexia [Recovered/Resolved]
  - Drug eruption [Recovered/Resolved]
  - Face oedema [Recovered/Resolved]
  - Drug reaction with eosinophilia and systemic symptoms [Recovering/Resolving]

NARRATIVE: CASE EVENT DATE: 20230105
